FAERS Safety Report 6845434-0 (Version None)
Quarter: 2010Q3

REPORT INFORMATION
  Report Type: 
  Country: None (occurrence: None)
  Receive Date: 20100715
  Receipt Date: 20090820
  Transmission Date: 20110219
  Serious: Yes (Hospitalization)
  Sender: FDA-Public Use
  Company Number: JP-SANOFI-AVENTIS-F01200900810

PATIENT
  Age: 68 Year
  Sex: Male
  Weight: 70 kg

DRUGS (19)
  1. CLOPIDOGREL BISULFATE [Suspect]
     Indication: ACUTE CORONARY SYNDROME
     Dosage: DOSE TEXT: MAINTENANCE DOSE
     Route: 048
     Dates: start: 20080701
  2. CLOPIDOGREL BISULFATE [Suspect]
     Indication: ANGINA UNSTABLE
     Dosage: DOSE TEXT: MAINTENANCE DOSE
     Route: 048
     Dates: start: 20080701
  3. ASPIRIN [Concomitant]
     Indication: ANGINA UNSTABLE
     Route: 048
     Dates: start: 20080630
  4. HEPARIN [Concomitant]
     Indication: ANGINA UNSTABLE
     Route: 042
     Dates: start: 20080729, end: 20080729
  5. HEPARIN [Concomitant]
     Route: 042
     Dates: start: 20080805
  6. FLOMOX [Concomitant]
     Route: 048
     Dates: start: 20080729, end: 20080729
  7. LIDOCAINE [Concomitant]
     Route: 050
     Dates: start: 20080729, end: 20080729
  8. LOXONIN [Concomitant]
     Route: 048
  9. ZOPICLONE [Concomitant]
     Route: 048
  10. DIAZEPAM [Concomitant]
     Route: 048
  11. CRESTOR [Concomitant]
     Indication: ANGINA UNSTABLE
     Route: 048
     Dates: start: 20080729, end: 20090506
  12. OMEPRAL [Concomitant]
     Route: 048
     Dates: start: 20080630, end: 20090329
  13. BASEN [Concomitant]
     Route: 048
     Dates: start: 20080602
  14. AMARYL [Concomitant]
     Route: 048
     Dates: start: 20080325
  15. MELBIN [Concomitant]
     Route: 048
     Dates: start: 20080625, end: 20081202
  16. NITOROL [Concomitant]
     Indication: ANGINA UNSTABLE
     Route: 042
     Dates: start: 20080729, end: 20080729
  17. SIGMART [Concomitant]
     Indication: ANGINA UNSTABLE
     Route: 042
     Dates: start: 20080729, end: 20080729
  18. LIDOCAINE [Concomitant]
     Route: 065
     Dates: start: 20080729, end: 20080729
  19. GLYCERYL TRINITRATE [Concomitant]
     Indication: ANGINA UNSTABLE
     Route: 065

REACTIONS (1)
  - LUMBAR SPINAL STENOSIS [None]
